FAERS Safety Report 20597392 (Version 1)
Quarter: 2022Q1

REPORT INFORMATION
  Report Type: Report from Study
  Country: US (occurrence: US)
  Receive Date: 20220315
  Receipt Date: 20220315
  Transmission Date: 20220423
  Serious: Yes (Hospitalization, Other)
  Sender: FDA-Public Use
  Company Number: US-EXELIXIS-CABO-22048842

PATIENT
  Age: 67 Year
  Sex: Male

DRUGS (11)
  1. CABOMETYX [Suspect]
     Active Substance: CABOZANTINIB S-MALATE
     Indication: Thyroid cancer
     Dosage: 60 MG, QD
     Dates: start: 20220117
  2. CABOMETYX [Suspect]
     Active Substance: CABOZANTINIB S-MALATE
     Dosage: 60 MG, QOD
     Dates: start: 20220127
  3. CALCIUM [Concomitant]
     Active Substance: CALCIUM
     Dosage: UNK
  4. GUMMIES D3 [Concomitant]
     Dosage: UNK
  5. ZINC [Concomitant]
     Active Substance: ZINC
     Dosage: UNK
  6. MAGNESIUM GLYCINATE/OXALATE [Concomitant]
     Dosage: UNK
  7. HERBALS\TURMERIC [Concomitant]
     Active Substance: HERBALS\TURMERIC
     Dosage: UNK
  8. VITAMIN D3 [Concomitant]
     Active Substance: CHOLECALCIFEROL
     Dosage: UNK
  9. VITAMIN C [Concomitant]
     Active Substance: ASCORBIC ACID
     Dosage: UNK
  10. LEVOTHYROXINE [Concomitant]
     Active Substance: LEVOTHYROXINE
     Dosage: UNK
  11. LISINOPRIL [Concomitant]
     Active Substance: LISINOPRIL

REACTIONS (16)
  - Vocal cord disorder [Unknown]
  - Dyspnoea [Unknown]
  - Blood pressure increased [Unknown]
  - Respiratory disorder [Unknown]
  - Head discomfort [Unknown]
  - Neck pain [Unknown]
  - Oral discomfort [Unknown]
  - Psoriasis [Unknown]
  - Fatigue [Recovered/Resolved]
  - Arthralgia [Unknown]
  - Mucosal inflammation [Unknown]
  - Dysphonia [Unknown]
  - Nausea [Unknown]
  - Constipation [Unknown]
  - Inflammation [Unknown]
  - Inappropriate schedule of product administration [Unknown]

NARRATIVE: CASE EVENT DATE: 20220127
